FAERS Safety Report 9912446 (Version 2)
Quarter: 2014Q2

REPORT INFORMATION
  Report Type: Spontaneous
  Country: US (occurrence: US)
  Receive Date: 20140220
  Receipt Date: 20140501
  Transmission Date: 20141212
  Serious: No
  Sender: FDA-Public Use
  Company Number: US-BRISTOL-MYERS SQUIBB COMPANY-20186581

PATIENT
  Age: 73 Year
  Sex: Male
  Weight: 79.82 kg

DRUGS (6)
  1. COUMADIN [Suspect]
     Indication: ATRIAL FIBRILLATION
     Dosage: 21APR10-AUG10
     Route: 048
     Dates: start: 20100421, end: 201008
  2. LISINOPRIL [Concomitant]
  3. SIMVASTATIN [Concomitant]
  4. JANUVIA [Concomitant]
  5. FLEXERIL [Concomitant]
  6. VIAGRA [Concomitant]

REACTIONS (2)
  - Epistaxis [Recovering/Resolving]
  - International normalised ratio increased [Recovering/Resolving]
